FAERS Safety Report 9887603 (Version 1)
Quarter: 2013Q4

REPORT INFORMATION
  Report Type: Spontaneous
  Country: US (occurrence: None)
  Receive Date: 20131223
  Receipt Date: 20131223
  Transmission Date: 20140711
  Serious: No
  Sender: FDA-Public Use
  Company Number: 220582LEO

PATIENT
  Age: 57 Year
  Sex: Female

DRUGS (1)
  1. PICATO (0.015%, GEL) [Suspect]
     Indication: ACTINIC KERATOSIS
     Dosage: 1 IN 1 D, TOPICAL
     Dates: start: 20130213, end: 20130215

REACTIONS (7)
  - Application site paraesthesia [None]
  - Application site erythema [None]
  - Application site vesicles [None]
  - Application site scab [None]
  - Application site swelling [None]
  - Vomiting [None]
  - Drug administration error [None]
